FAERS Safety Report 6730506-1 (Version None)
Quarter: 2010Q2

REPORT INFORMATION
  Report Type: 
  Country: None (occurrence: None)
  Receive Date: 20100514
  Receipt Date: 20100506
  Transmission Date: 20101027
  Serious: Yes (Hospitalization)
  Sender: FDA-Public Use
  Company Number: USA/USA/10/0012621

PATIENT
  Age: 50 Year
  Sex: Male
  Weight: 118.2074 kg

DRUGS (16)
  1. GLIMEPIRIDE [Suspect]
     Indication: DIABETES MELLITUS
     Dosage: 6 MG, 1 IN 1 D, PER ORAL
     Route: 048
     Dates: start: 20100222
  2. METFORMIN HCL [Suspect]
     Indication: DIABETES MELLITUS
     Dosage: 1000 MG, 2 IN 1 D, PER ORAL
     Route: 048
     Dates: start: 20091027
  3. STUDY DRUG [Suspect]
     Indication: DIABETES MELLITUS
     Dates: start: 20091116
  4. OMEPRAZOLE [Concomitant]
  5. ATENOLOL [Concomitant]
  6. HYDROCHLOROTHIAZIDE (HYDROCHLOROTHAIZIDE) [Concomitant]
  7. ENALAPRIL MALEATE [Concomitant]
  8. SIMVASTATIN [Concomitant]
  9. LEVOTHYROXINE SODIUM [Concomitant]
  10. AMLODIPINE [Concomitant]
  11. ASPIRIN [Concomitant]
  12. PROTONIX [Concomitant]
  13. OXYCONTIN [Concomitant]
  14. HYDROCODONE-APAP (PROCET /01554201/) [Concomitant]
  15. GLYBURIDE [Concomitant]
  16. DIAZEPAM [Concomitant]

REACTIONS (4)
  - ACCIDENTAL EXPOSURE [None]
  - ALTERED STATE OF CONSCIOUSNESS [None]
  - AMNESIA [None]
  - CONFUSIONAL STATE [None]
